FAERS Safety Report 9218210 (Version 1)
Quarter: 2013Q2

REPORT INFORMATION
  Report Type: Report from Study
  Country: US (occurrence: US)
  Receive Date: 20130408
  Receipt Date: 20130408
  Transmission Date: 20140414
  Serious: Yes (Congenital Anomaly, Other)
  Sender: FDA-Public Use
  Company Number: US-UCBSA-019910

PATIENT
  Sex: Male
  Weight: 3.17 kg

DRUGS (3)
  1. KEPPRA [Suspect]
     Indication: EPILEPSY
     Route: 064
     Dates: start: 2008
  2. FOLIC ACID [Concomitant]
     Indication: PREGNANCY
     Route: 064
  3. PRENATAL VITAMINS [Concomitant]
     Indication: PREGNANCY
     Dosage: FREQUENCY:1
     Route: 064
     Dates: start: 20090629

REACTIONS (12)
  - Plagiocephaly [Recovered/Resolved]
  - Developmental delay [Recovered/Resolved]
  - Cytogenetic abnormality [Unknown]
  - Congenital skin dimples [Unknown]
  - Umbilical granuloma [Unknown]
  - Phimosis [Unknown]
  - Gastrooesophageal reflux disease [Unknown]
  - Poor quality sleep [Recovered/Resolved]
  - Rhinitis allergic [Unknown]
  - Milk allergy [Unknown]
  - Constipation [Unknown]
  - Foetal exposure during pregnancy [Unknown]
